FAERS Safety Report 21280036 (Version 2)
Quarter: 2022Q3

REPORT INFORMATION
  Report Type: Spontaneous
  Country: US (occurrence: US)
  Receive Date: 20220901
  Receipt Date: 20220927
  Transmission Date: 20221027
  Serious: Yes (Death, Other)
  Sender: FDA-Public Use
  Company Number: US-APOTEX-2022AP012025

PATIENT
  Age: 71 Year
  Sex: Female

DRUGS (1)
  1. ENOXAPARIN [Suspect]
     Active Substance: ENOXAPARIN
     Indication: Pulmonary embolism
     Dosage: 75 MG BID FROM 8/5 AM TO 8/8 AM THEN 70 MG BID FROM 8/8 PM ?8/9 AM, 9 DOSES
     Route: 058
     Dates: start: 20220805, end: 20220809

REACTIONS (3)
  - Shock haemorrhagic [Unknown]
  - Abdominal wall haematoma [Fatal]
  - Retroperitoneal haemorrhage [Not Recovered/Not Resolved]

NARRATIVE: CASE EVENT DATE: 20220801
